FAERS Safety Report 5201325-2 (Version None)
Quarter: 2006Q4

REPORT INFORMATION
  Report Type: 
  Country: None (occurrence: None)
  Receive Date: 20061016
  Receipt Date: 20060714
  Transmission Date: 20070319
  Serious: No
  Sender: FDA-Public Use
  Company Number: 2006SP002713

PATIENT
  Age: 25 Year
  Sex: Female
  Weight: 77.1115 kg

DRUGS (2)
  1. LUNESTA [Suspect]
     Indication: INSOMNIA
     Dosage: 2 MG 1X ORAL
     Route: 048
     Dates: start: 20060710, end: 20060710
  2. AMBIEN [Concomitant]

REACTIONS (1)
  - DYSGEUSIA [None]
